FAERS Safety Report 4979535-9 (Version None)
Quarter: 2006Q2

REPORT INFORMATION
  Report Type: 
  Country: None (occurrence: None)
  Receive Date: 20060418
  Receipt Date: 20060203
  Transmission Date: 20061013
  Serious: Yes (Death, Hospitalization)
  Sender: FDA-Public Use
  Company Number: EWC050745079

PATIENT
  Age: 62 Year
  Sex: Male
  Weight: 82 kg

DRUGS (8)
  1. ALIMTA [Suspect]
     Indication: COLON CANCER
     Dosage: 1000 MG, ONCE EVERY 3 WEEKS, INTRAVENOUS; SEE IMAGE
     Route: 042
     Dates: start: 20050715
  2. ALIMTA [Suspect]
     Indication: COLON CANCER
     Dosage: 1000 MG, ONCE EVERY 3 WEEKS, INTRAVENOUS; SEE IMAGE
     Route: 042
     Dates: start: 20050805
  3. LY317615 (ENZASTAURIN (LY317615) UNKNOWN FORMULATION) UNKNOWN [Suspect]
     Indication: COLON CANCER
     Dosage: 400 MG, 3/D, ORAL
     Route: 048
     Dates: start: 20050719
  4. VITAMIN B12 (BITAMIN B12) [Concomitant]
  5. FOLIUMZUUR (FOLIC ACID) [Concomitant]
  6. METFORMIN [Concomitant]
  7. GLUCOZIDE (GLICLAZIDE) [Concomitant]
  8. DEXAMETHASONE [Concomitant]

REACTIONS (8)
  - ALANINE AMINOTRANSFERASE INCREASED [None]
  - ASPARTATE AMINOTRANSFERASE INCREASED [None]
  - BLOOD BILIRUBIN INCREASED [None]
  - C-REACTIVE PROTEIN INCREASED [None]
  - CHOLESTASIS [None]
  - MALIGNANT NEOPLASM PROGRESSION [None]
  - PYREXIA [None]
  - URINARY TRACT INFECTION [None]
